FAERS Safety Report 24325391 (Version 1)
Quarter: 2024Q3

REPORT INFORMATION
  Report Type: Spontaneous
  Country: US (occurrence: US)
  Receive Date: 20240916
  Receipt Date: 20240916
  Transmission Date: 20241017
  Serious: No
  Sender: KVK-TECH
  Company Number: US-KVK-TECH, INC-20240500036

PATIENT
  Age: 29 Year
  Sex: Female
  Weight: 90.703 kg

DRUGS (10)
  1. OXYCODONE HYDROCHLORIDE [Suspect]
     Active Substance: OXYCODONE HYDROCHLORIDE
     Indication: Pain
     Dosage: UNKNOWN
     Route: 065
     Dates: start: 20240428
  2. OXYCODONE HYDROCHLORIDE [Suspect]
     Active Substance: OXYCODONE HYDROCHLORIDE
     Dosage: UNK UNK, QID
  3. OXYCODONE HYDROCHLORIDE [Suspect]
     Active Substance: OXYCODONE HYDROCHLORIDE
     Indication: Pain
     Dosage: 15 MILLIGRAM, QID(4 TIMES A DAY)              (01 TABLET FOR EVERY 06 HOURS)
     Dates: start: 20240516
  4. HYDROCODONE [Concomitant]
     Active Substance: HYDROCODONE
     Indication: Product used for unknown indication
     Dosage: UNK, UNKNOWN
     Route: 065
  5. OMEPRAZOLE [Concomitant]
     Active Substance: OMEPRAZOLE
     Indication: Product used for unknown indication
     Dosage: UNK, UNKNOWN
     Route: 065
  6. Belic [Concomitant]
     Indication: Product used for unknown indication
     Dosage: UNK, UNKNOWN (INJECTION)
     Route: 065
  7. PREDNISONE [Concomitant]
     Active Substance: PREDNISONE
     Indication: Product used for unknown indication
     Dosage: 1 MILLIGRAM, QD(1MG, 5MG TOGETHER EVERY DAY)
     Route: 065
  8. PREDNISONE [Concomitant]
     Active Substance: PREDNISONE
     Dosage: 5 MILLIGRAM, QD (1MG, 5MG TOGETHER EVERY DAY)
     Route: 065
  9. HYDROXYCHLOROQUINE [Concomitant]
     Active Substance: HYDROXYCHLOROQUINE
     Indication: Product used for unknown indication
     Route: 065
  10. BENLYSTA [Concomitant]
     Active Substance: BELIMUMAB
     Dosage: UNK, UNKNOWN(EVERY WEEK)
     Route: 065

REACTIONS (6)
  - Illness [Unknown]
  - Nausea [Unknown]
  - Headache [Unknown]
  - Somnolence [Unknown]
  - Drug ineffective [Unknown]
  - Product quality issue [Unknown]

NARRATIVE: CASE EVENT DATE: 20240101
